FAERS Safety Report 4497524-8 (Version None)
Quarter: 2004Q4

REPORT INFORMATION
  Report Type: 
  Country: None (occurrence: None)
  Receive Date: 20041104
  Receipt Date: 20041025
  Transmission Date: 20050328
  Serious: Yes (Other)
  Sender: FDA-Public Use
  Company Number: OMPQ-NO-0411S-1320

PATIENT
  Age: 3 Month
  Sex: Male

DRUGS (2)
  1. OMNIPAQUE 180 [Suspect]
     Indication: HEART DISEASE CONGENITAL
     Dosage: SINGLE DOSE, I.A.
     Dates: start: 20031003, end: 20031003
  2. VECURONIUM BROMIDE (MUSCULAX) [Concomitant]

REACTIONS (2)
  - DEPRESSED LEVEL OF CONSCIOUSNESS [None]
  - POST PROCEDURAL COMPLICATION [None]
